FAERS Safety Report 16724138 (Version 2)
Quarter: 2024Q1

REPORT INFORMATION
  Report Type: Spontaneous
  Country: CA (occurrence: CA)
  Receive Date: 20190821
  Receipt Date: 20240316
  Transmission Date: 20240410
  Serious: Yes (Other)
  Sender: FDA-Public Use
  Company Number: CA-AUROBINDO-AUR-APL-2019-053937

PATIENT
  Age: 33 Year
  Sex: Male

DRUGS (6)
  1. CEFUROXIME [Interacting]
     Active Substance: CEFUROXIME
     Indication: Wound infection
     Dosage: 500 MILLIGRAM, TWO TIMES A DAY
     Route: 065
  2. INFLIXIMAB [Interacting]
     Active Substance: INFLIXIMAB
     Indication: Crohn^s disease
     Dosage: 800 MILLIGRAM
     Route: 042
  3. CIPROFLOXACIN [Concomitant]
     Active Substance: CIPROFLOXACIN
     Indication: Wound infection
     Dosage: UNK
     Route: 065
  4. CLINDAMYCIN [Concomitant]
     Active Substance: CLINDAMYCIN
     Indication: Wound infection
     Dosage: UNK
     Route: 065
  5. METHOTREXATE [Concomitant]
     Active Substance: METHOTREXATE
     Indication: Product used for unknown indication
     Dosage: UNK
     Route: 065
  6. PREDNISONE [Concomitant]
     Active Substance: PREDNISONE
     Indication: Product used for unknown indication
     Dosage: 70 MILLIGRAM, ONCE A DAY
     Route: 065

REACTIONS (6)
  - Skin ulcer [Not Recovered/Not Resolved]
  - Blood pressure fluctuation [Not Recovered/Not Resolved]
  - Wound infection [Not Recovered/Not Resolved]
  - Wound secretion [Not Recovered/Not Resolved]
  - Drug interaction [Not Recovered/Not Resolved]
  - Drug ineffective [Not Recovered/Not Resolved]
